FAERS Safety Report 10619968 (Version 1)
Quarter: 2014Q4

REPORT INFORMATION
  Report Type: Spontaneous
  Country: US (occurrence: None)
  Receive Date: 20141201
  Receipt Date: 20141201
  Transmission Date: 20150529
  Serious: Yes (Other)
  Sender: FDA-Public Use
  Company Number: None

PATIENT
  Age: 80 Year
  Sex: Male
  Weight: 69.85 kg

DRUGS (1)
  1. KLARICID [Suspect]
     Active Substance: CLARITHROMYCIN

REACTIONS (3)
  - Blindness unilateral [None]
  - Blindness transient [None]
  - Visual field defect [None]

NARRATIVE: CASE EVENT DATE: 20141104
